FAERS Safety Report 11522839 (Version 4)
Quarter: 2016Q2

REPORT INFORMATION
  Report Type: Report from Study
  Country: US (occurrence: US)
  Receive Date: 20150918
  Receipt Date: 20160623
  Transmission Date: 20160815
  Serious: Yes (Hospitalization)
  Sender: FDA-Public Use
  Company Number: US-ACTELION-A-US2015-120705

PATIENT
  Age: 50 Year
  Sex: Female

DRUGS (3)
  1. WARFARIN [Concomitant]
     Active Substance: WARFARIN
  2. REMODULIN [Concomitant]
     Active Substance: TREPROSTINIL
  3. OPSUMIT [Suspect]
     Active Substance: MACITENTAN
     Indication: PULMONARY HYPERTENSION
     Dosage: 10 MG, QD
     Route: 048
     Dates: start: 20150223

REACTIONS (8)
  - Infusion site infection [Unknown]
  - Infusion site discharge [Unknown]
  - Device related infection [Unknown]
  - Infection [Unknown]
  - Pyrexia [Unknown]
  - Infusion site pain [Unknown]
  - Infusion site erythema [Unknown]
  - Medical device change [Unknown]
